FAERS Safety Report 6900832-1 (Version None)
Quarter: 2010Q3

REPORT INFORMATION
  Report Type: 
  Country: None (occurrence: None)
  Receive Date: 20100803
  Receipt Date: 20100721
  Transmission Date: 20110219
  Serious: Yes (Other)
  Sender: FDA-Public Use
  Company Number: US-PFIZER INC-2010077312

PATIENT
  Sex: Female
  Weight: 76.19 kg

DRUGS (11)
  1. LIPITOR [Suspect]
     Indication: BLOOD CHOLESTEROL INCREASED
     Dosage: 40 MG, 1X/DAY
     Route: 048
  2. DETROL LA [Suspect]
     Indication: HYPERTONIC BLADDER
     Dosage: UNK
     Route: 048
  3. TOVIAZ [Suspect]
     Indication: BLADDER DISORDER
     Dosage: 4 MG, 1X/DAY
     Route: 048
     Dates: start: 20100621
  4. CAPOTEN [Concomitant]
     Indication: HYPERTENSION
     Dosage: 50 MG, 2X/DAY
  5. LABETALOL [Concomitant]
     Indication: HYPERTENSION
     Dosage: 100 MG, 2X/DAY
  6. ZETIA [Concomitant]
     Dosage: 10 MG, UNK
  7. NEXIUM [Concomitant]
     Dosage: 40 MG, DAILY
  8. KLOR-CON [Concomitant]
     Dosage: 10 MG, 4X/DAY
  9. LEVOTHYROXINE [Concomitant]
     Indication: THYROID DISORDER
     Dosage: 50 MG, UNK
  10. LASIX [Concomitant]
     Dosage: 40 MG, DAILY
  11. BACTRIM [Concomitant]
     Indication: URINARY TRACT INFECTION
     Dosage: UNK

REACTIONS (4)
  - BLADDER DISORDER [None]
  - BLOOD CHOLESTEROL INCREASED [None]
  - BLOOD TRIGLYCERIDES INCREASED [None]
  - GENERALISED OEDEMA [None]
